FAERS Safety Report 8495342-7 (Version None)
Quarter: 2012Q3

REPORT INFORMATION
  Report Type: 
  Country: None (occurrence: None)
  Receive Date: 20120709
  Receipt Date: 20120702
  Transmission Date: 20120928
  Serious: No
  Sender: FDA-Public Use
  Company Number: US-BAYER-2012-067619

PATIENT
  Age: 3 Year

DRUGS (1)
  1. ALEVE (CAPLET) [Suspect]
     Dosage: 1 U, UNK
     Route: 048
     Dates: start: 20120702, end: 20120702

REACTIONS (1)
  - NO ADVERSE EVENT [None]
